FAERS Safety Report 7023596-2 (Version None)
Quarter: 2010Q3

REPORT INFORMATION
  Report Type: 
  Country: None (occurrence: None)
  Receive Date: 20100930
  Receipt Date: 20100930
  Transmission Date: 20110219
  Serious: Yes (Other)
  Sender: FDA-Public Use
  Company Number: None

PATIENT
  Age: 60 Year
  Sex: Female
  Weight: 90.7194 kg

DRUGS (1)
  1. LISINOPRIL [Suspect]
     Indication: BLOOD PRESSURE INCREASED
     Dosage: 20 MG ONCE A DAY
     Dates: start: 20100608, end: 20100928

REACTIONS (3)
  - BLOOD PRESSURE INCREASED [None]
  - CHOKING [None]
  - COUGH [None]
